FAERS Safety Report 19676602 (Version 1)
Quarter: 2021Q3

REPORT INFORMATION
  Report Type: Spontaneous
  Country: FR (occurrence: FR)
  Receive Date: 20210809
  Receipt Date: 20210809
  Transmission Date: 20211014
  Serious: Yes (Other)
  Sender: FDA-Public Use
  Company Number: FR-PFIZER INC-202100960594

PATIENT
  Age: 83 Year
  Sex: Male

DRUGS (1)
  1. VYNDAQEL [Suspect]
     Active Substance: TAFAMIDIS MEGLUMINE
     Dosage: UNK
     Dates: start: 202102

REACTIONS (3)
  - Haemorrhage urinary tract [Unknown]
  - Wrong technique in product usage process [Unknown]
  - Blood urine present [Unknown]

NARRATIVE: CASE EVENT DATE: 202102
